FAERS Safety Report 9853476 (Version 1)
Quarter: 2014Q1

REPORT INFORMATION
  Report Type: Spontaneous
  Country: JP (occurrence: JP)
  Receive Date: 20140129
  Receipt Date: 20140129
  Transmission Date: 20141002
  Serious: Yes (Other)
  Sender: FDA-Public Use
  Company Number: PHHY2014JP008779

PATIENT
  Age: 36 Year
  Sex: Female

DRUGS (3)
  1. CICLOSPORIN [Suspect]
     Indication: DERMATOMYOSITIS
     Route: 048
  2. PREDNISOLONE [Suspect]
     Indication: DERMATOMYOSITIS
     Dosage: 40 MG, PER DAY
  3. TACROLIMUS [Suspect]
     Indication: DERMATOMYOSITIS
     Dosage: 3 MG, PER DAY

REACTIONS (1)
  - Post transplant distal limb syndrome [Recovering/Resolving]
